FAERS Safety Report 10177070 (Version 1)
Quarter: 2014Q2

REPORT INFORMATION
  Report Type: Spontaneous
  Country: US (occurrence: US)
  Receive Date: 20140516
  Receipt Date: 20140516
  Transmission Date: 20141212
  Serious: No
  Sender: FDA-Public Use
  Company Number: US-LUNDBECK-DKLU1099399

PATIENT
  Age: 7 Year
  Sex: Female

DRUGS (2)
  1. SABRIL     (TABLET) [Suspect]
     Indication: PRODUCT USED FOR UNKNOWN INDICATION
  2. SABRIL     (TABLET) [Suspect]

REACTIONS (5)
  - Hypersomnia [Unknown]
  - Balance disorder [Unknown]
  - Ear discomfort [Unknown]
  - Fatigue [Unknown]
  - Tremor [Unknown]
